FAERS Safety Report 4364489-9 (Version None)
Quarter: 2004Q2

REPORT INFORMATION
  Report Type: 
  Country: None (occurrence: None)
  Receive Date: 20040519
  Receipt Date: 20040511
  Transmission Date: 20050107
  Serious: Yes (Other)
  Sender: FDA-Public Use
  Company Number: 200403789

PATIENT
  Age: 9 Year
  Sex: Female
  Weight: 30.8446 kg

DRUGS (3)
  1. CHILDREN'S TYLENOL SUSPENSION LIQUID STRAWBERRY [Suspect]
     Indication: ABDOMINAL PAIN
     Dosage: 400 MG FOR 2 DOSES
     Dates: start: 20040510, end: 20040511
  2. PEPTO BISMOL (BISMUTH SUBSALICYLATE) [Concomitant]
  3. MILK OF MAGNESIA (MAGNESIUM HYDROXIDE) [Concomitant]

REACTIONS (2)
  - DEHYDRATION [None]
  - HYPERSENSITIVITY [None]
